FAERS Safety Report 9097401 (Version 1)
Quarter: 2013Q1

REPORT INFORMATION
  Report Type: Spontaneous
  Country: FR (occurrence: FR)
  Receive Date: 20130212
  Receipt Date: 20130212
  Transmission Date: 20140127
  Serious: Yes (Hospitalization)
  Sender: FDA-Public Use
  Company Number: FR-BRISTOL-MYERS SQUIBB COMPANY-17351057

PATIENT
  Age: 71 Year
  Sex: Male

DRUGS (3)
  1. APROVEL TABS 300 MG [Suspect]
     Dates: start: 201202, end: 20120820
  2. PERMIXON [Concomitant]
  3. DAFALGAN [Concomitant]

REACTIONS (1)
  - Pancytopenia [Recovered/Resolved]
